FAERS Safety Report 5025529-7 (Version None)
Quarter: 2006Q2

REPORT INFORMATION
  Report Type: 
  Country: None (occurrence: None)
  Receive Date: 20060608
  Receipt Date: 20060530
  Transmission Date: 20061013
  Serious: Yes (Death, Hospitalization)
  Sender: FDA-Public Use
  Company Number: FR200605006567

PATIENT
  Age: 62 Year
  Sex: Male

DRUGS (5)
  1. ALIMTA [Suspect]
     Indication: MESOTHELIOMA MALIGNANT
     Dosage: 876 MG, OTHER, INTRAVENOUS
     Route: 042
     Dates: start: 20050401, end: 20050603
  2. GEMZA (GEMCITABINE HYDROCHLORIDE) VIAL [Suspect]
     Indication: MESOTHELIOMA MALIGNANT
     Dosage: INTRAVENOUS
     Route: 042
     Dates: start: 20050711
  3. SPECIAFOLDINE (FOLIC ACID) [Concomitant]
  4. AMITRIPTYLINE HCL [Concomitant]
  5. MORPHINE SULFATE [Concomitant]

REACTIONS (2)
  - DISEASE PROGRESSION [None]
  - PULMONARY EMBOLISM [None]
